FAERS Safety Report 6582950-3 (Version None)
Quarter: 2010Q1

REPORT INFORMATION
  Report Type: 
  Country: None (occurrence: None)
  Receive Date: 20100216
  Receipt Date: 20100204
  Transmission Date: 20100710
  Serious: Yes (Hospitalization)
  Sender: FDA-Public Use
  Company Number: ZA-SANOFI-AVENTIS-2010SA006848

PATIENT
  Age: 16 Year
  Sex: Male

DRUGS (2)
  1. STILNOX [Suspect]
     Indication: DRUG USE FOR UNKNOWN INDICATION
     Route: 048
  2. RIVOTRIL [Suspect]
     Indication: DRUG USE FOR UNKNOWN INDICATION
     Route: 048

REACTIONS (6)
  - ABNORMAL BEHAVIOUR [None]
  - AGGRESSION [None]
  - DISORIENTATION [None]
  - DRUG INTERACTION [None]
  - MUSCLE SPASMS [None]
  - MUSCLE TIGHTNESS [None]
